FAERS Safety Report 7118330-1 (Version None)
Quarter: 2010Q4

REPORT INFORMATION
  Report Type: 
  Country: None (occurrence: None)
  Receive Date: 20101123
  Receipt Date: 20101117
  Transmission Date: 20110411
  Serious: Yes (Death, Other)
  Sender: FDA-Public Use
  Company Number: PHHY2010JP78216

PATIENT
  Age: 68 Year
  Sex: Male

DRUGS (1)
  1. DIOVAN T30230+TAB+HY [Suspect]
     Indication: HYPERTENSION
     Dosage: UNK
     Route: 048

REACTIONS (5)
  - BRAIN CONTUSION [None]
  - CARDIO-RESPIRATORY ARREST [None]
  - COMA [None]
  - FALL [None]
  - MYOCARDIAL INFARCTION [None]
